FAERS Safety Report 24390512 (Version 1)
Quarter: 2024Q4

REPORT INFORMATION
  Report Type: Spontaneous
  Country: US (occurrence: US)
  Receive Date: 20241003
  Receipt Date: 20241003
  Transmission Date: 20250114
  Serious: No
  Sender: TRIS PHARM
  Company Number: US-TRIS PHARMA, INC.-24US011650

PATIENT

DRUGS (1)
  1. DYANAVEL XR [Suspect]
     Active Substance: AMPHETAMINE
     Indication: Attention deficit hyperactivity disorder
     Dosage: UNK

REACTIONS (1)
  - Gastrooesophageal reflux disease [Unknown]
